FAERS Safety Report 11368441 (Version 1)
Quarter: 2015Q3

REPORT INFORMATION
  Report Type: Spontaneous
  Country: US (occurrence: US)
  Receive Date: 20150811
  Receipt Date: 20150811
  Transmission Date: 20151125
  Serious: Yes (Other)
  Sender: FDA-Public Use
  Company Number: US-ELI_LILLY_AND_COMPANY-US201206007891

PATIENT
  Age: 67 Year
  Sex: Male

DRUGS (11)
  1. CLONIDINE. [Concomitant]
     Active Substance: CLONIDINE
  2. AXIRON [Suspect]
     Active Substance: TESTOSTERONE
     Dosage: UNK, ONE PUMP A DAY
     Route: 065
  3. AMLODIPINE BESILATE [Concomitant]
     Active Substance: AMLODIPINE BESYLATE
  4. CRESTOR [Concomitant]
     Active Substance: ROSUVASTATIN CALCIUM
  5. COENZYME Q10 [Concomitant]
     Active Substance: UBIDECARENONE
     Route: 065
  6. NEXIUM [Concomitant]
     Active Substance: ESOMEPRAZOLE MAGNESIUM
  7. AXIRON [Suspect]
     Active Substance: TESTOSTERONE
     Indication: BLOOD TESTOSTERONE DECREASED
     Dosage: UNK
  8. DIOVAN [Concomitant]
     Active Substance: VALSARTAN
  9. AXIRON [Suspect]
     Active Substance: TESTOSTERONE
  10. AXIRON [Suspect]
     Active Substance: TESTOSTERONE
     Dosage: UNK, 2 PUMPS A DAY
     Route: 065
  11. ATENOLOL. [Concomitant]
     Active Substance: ATENOLOL

REACTIONS (18)
  - Myalgia [Unknown]
  - Muscle hypertrophy [Unknown]
  - Aggression [Unknown]
  - Swelling [Unknown]
  - Tension [Unknown]
  - Headache [Unknown]
  - Chest pain [Unknown]
  - Urinary incontinence [Unknown]
  - Hypertension [Unknown]
  - Blood testosterone decreased [Unknown]
  - Abdominal pain upper [Unknown]
  - Nervousness [Unknown]
  - Intentional product misuse [Unknown]
  - Rash [Unknown]
  - Joint swelling [Unknown]
  - Night sweats [Unknown]
  - Feeling abnormal [Unknown]
  - Hypoaesthesia [Unknown]

NARRATIVE: CASE EVENT DATE: 201407
